FAERS Safety Report 6728233-X (Version None)
Quarter: 2010Q2

REPORT INFORMATION
  Report Type: 
  Country: None (occurrence: None)
  Receive Date: 20100517
  Receipt Date: 20100511
  Transmission Date: 20101027
  Serious: Yes (Other)
  Sender: FDA-Public Use
  Company Number: BR-BRISTOL-MYERS SQUIBB COMPANY-15104649

PATIENT
  Age: 44 Year
  Sex: Female
  Weight: 56 kg

DRUGS (5)
  1. ORENCIA [Suspect]
     Indication: RHEUMATOID ARTHRITIS
     Dosage: 11 CYCLE
     Dates: start: 20090601
  2. CARVEDILOL [Concomitant]
  3. ENALAPRIL [Concomitant]
  4. METOTREXATO [Concomitant]
  5. DICLOFENAC [Concomitant]

REACTIONS (2)
  - CARDIAC FAILURE [None]
  - DRUG INEFFECTIVE [None]
